FAERS Safety Report 17043725 (Version 1)
Quarter: 2019Q4

REPORT INFORMATION
  Report Type: Spontaneous
  Country: US (occurrence: US)
  Receive Date: 20191115
  Receipt Date: 20191115
  Transmission Date: 20200122
  Serious: Yes (Death)
  Sender: FDA-Public Use
  Company Number: None

PATIENT
  Age: 46 Year
  Sex: Female

DRUGS (2)
  1. BRAFTOVI [Suspect]
     Active Substance: ENCORAFENIB
     Indication: COLON CANCER
     Route: 048
     Dates: start: 20191015, end: 20191115
  2. MEKTOVI [Suspect]
     Active Substance: BINIMETINIB
     Indication: COLON CANCER
     Route: 048
     Dates: start: 20191015, end: 20191115

REACTIONS (1)
  - Death [None]

NARRATIVE: CASE EVENT DATE: 20191115
